FAERS Safety Report 7743241-8 (Version None)
Quarter: 2011Q3

REPORT INFORMATION
  Report Type: 
  Country: None (occurrence: None)
  Receive Date: 20110908
  Receipt Date: 20110908
  Transmission Date: 20111222
  Serious: Yes (Death, Life-Threatening, Hospitalization)
  Sender: FDA-Public Use
  Company Number: None

PATIENT
  Age: 77 Year
  Sex: Female

DRUGS (10)
  1. IBUPROFEN [Suspect]
  2. FEBUXOSTAT [Concomitant]
  3. ZEMPLAR [Concomitant]
  4. LISINOPRIL [Concomitant]
  5. FUROSEMIDE [Concomitant]
  6. ALLOPURINOL [Suspect]
  7. AMLODIPINE [Suspect]
  8. NORMODYNE [Concomitant]
  9. ATOVASTATIN [Concomitant]
  10. ASPIRIN [Concomitant]

REACTIONS (3)
  - STEVENS-JOHNSON SYNDROME [None]
  - TOXIC EPIDERMAL NECROLYSIS [None]
  - RENAL FAILURE ACUTE [None]
